FAERS Safety Report 5689112-2 (Version None)
Quarter: 2008Q1

REPORT INFORMATION
  Report Type: 
  Country: None (occurrence: None)
  Receive Date: 20080331
  Receipt Date: 19770715
  Transmission Date: 20080703
  Serious: Yes (Death, Other)
  Sender: FDA-Public Use
  Company Number: US-ROCHE-770200051001

PATIENT
  Age: 18 Year
  Sex: Female
  Weight: 54 kg

DRUGS (8)
  1. VALIUM [Suspect]
     Indication: DRUG USE FOR UNKNOWN INDICATION
     Route: 048
  2. LIBRIUM [Suspect]
     Indication: DRUG USE FOR UNKNOWN INDICATION
     Route: 048
  3. DALMANE [Suspect]
     Indication: DRUG USE FOR UNKNOWN INDICATION
     Route: 048
  4. AMITRIPTYLINE HYDROCHLORIDE [Concomitant]
     Indication: DRUG USE FOR UNKNOWN INDICATION
     Route: 065
  5. MORPHINE [Concomitant]
     Route: 065
  6. METHADON HCL TAB [Concomitant]
     Route: 065
  7. PROPOXYPHENE HYDROCHLORIDE [Concomitant]
     Route: 065
  8. AMPHETAMINE SULFATE [Concomitant]
     Route: 065

REACTIONS (2)
  - DRUG TOXICITY [None]
  - PULMONARY OEDEMA [None]
